FAERS Safety Report 5809083-5 (Version None)
Quarter: 2008Q3

REPORT INFORMATION
  Report Type: 
  Country: None (occurrence: None)
  Receive Date: 20080711
  Receipt Date: 20080711
  Transmission Date: 20090109
  Serious: Yes (Hospitalization)
  Sender: FDA-Public Use
  Company Number: None

PATIENT
  Sex: Female
  Weight: 76.6579 kg

DRUGS (1)
  1. VERAMYST [Suspect]
     Indication: NASAL CONGESTION
     Dosage: 2 SPRAYS IN EACH NOSTRIL, ONCE AT NIGHT, NASAL
     Route: 045
     Dates: start: 20080301, end: 20080701

REACTIONS (7)
  - DIZZINESS [None]
  - DYSPNOEA [None]
  - FALL [None]
  - MALAISE [None]
  - MUSCULOSKELETAL STIFFNESS [None]
  - SWOLLEN TONGUE [None]
  - TINNITUS [None]
